FAERS Safety Report 5034847-8 (Version None)
Quarter: 2006Q2

REPORT INFORMATION
  Report Type: 
  Country: None (occurrence: None)
  Receive Date: 20060516
  Receipt Date: 20050812
  Transmission Date: 20061013
  Serious: Yes (Other)
  Sender: FDA-Public Use
  Company Number: 2005115276

PATIENT
  Sex: Female
  Weight: 81 kg

DRUGS (9)
  1. CEREBYX [Suspect]
     Indication: CONVULSION
     Dosage: 800 MG
     Dates: start: 20050803, end: 20050809
  2. CEREBYX [Suspect]
  3. ACYCLOVIR [Concomitant]
  4. RISPERDAL [Concomitant]
  5. ZANTAC [Concomitant]
  6. VALPROIC ACID [Concomitant]
  7. LORAZEPAM [Concomitant]
  8. HEPARIN LOCK FLUSH (HEPARIN SODIUM) [Concomitant]
  9. ACETAMINOPHEN [Concomitant]

REACTIONS (1)
  - ANTICONVULSANT DRUG LEVEL BELOW THERAPEUTIC [None]
